FAERS Safety Report 5938299-2 (Version None)
Quarter: 2008Q4

REPORT INFORMATION
  Report Type: 
  Country: None (occurrence: None)
  Receive Date: 20081031
  Receipt Date: 20081021
  Transmission Date: 20090506
  Serious: Yes (Hospitalization)
  Sender: FDA-Public Use
  Company Number: US-ABBOTT-08P-163-0483214-00

PATIENT
  Sex: Female
  Weight: 102.27 kg

DRUGS (14)
  1. HUMIRA [Suspect]
     Indication: PSORIASIS
     Dosage: EVERY WEEK X FOUR WEEKS
     Route: 058
     Dates: start: 20080401, end: 20080401
  2. HUMIRA [Suspect]
     Route: 058
     Dates: start: 20080501
  3. NIFEDIPINE [Concomitant]
     Indication: HYPERTENSION
     Route: 048
     Dates: start: 19960101
  4. LANSOPRAZOLE [Concomitant]
     Indication: GASTROOESOPHAGEAL REFLUX DISEASE
     Route: 048
     Dates: start: 20020101
  5. METOPROLOL TARTRATE [Concomitant]
     Indication: HYPERTENSION
     Route: 048
  6. ACETYLSALICYLIC ACID SRT [Concomitant]
     Indication: DRUG USE FOR UNKNOWN INDICATION
     Dosage: ONE TABELET DAILY
     Route: 048
  7. NAPROXEN SODIUM [Concomitant]
     Indication: ARTHRITIS
     Route: 048
  8. GLIBOMET [Concomitant]
     Indication: DIABETES MELLITUS
     Dosage: 2 X 500MG TABLETS DAILY
     Route: 048
     Dates: start: 20010101
  9. SIMVASTATIN [Concomitant]
     Indication: BLOOD CHOLESTEROL
     Route: 048
  10. RANITIDINE [Concomitant]
     Indication: GASTROOESOPHAGEAL REFLUX DISEASE
     Route: 048
  11. METOCLOPRAMIDE [Concomitant]
     Indication: GASTROOESOPHAGEAL REFLUX DISEASE
     Route: 048
     Dates: start: 19930101
  12. OXYGEN [Concomitant]
     Indication: CHRONIC OBSTRUCTIVE PULMONARY DISEASE
     Dosage: CONTINUOUS PER NASAL CANNULA
     Route: 045
     Dates: start: 19930101
  13. OXYGEN [Concomitant]
     Indication: BRONCHITIS
  14. OXYGEN [Concomitant]
     Indication: EMPHYSEMA

REACTIONS (6)
  - ARTHRALGIA [None]
  - BRONCHITIS [None]
  - CHRONIC OBSTRUCTIVE PULMONARY DISEASE [None]
  - COUGH [None]
  - PSORIASIS [None]
  - PULMONARY MASS [None]
